FAERS Safety Report 9520135 (Version 2)
Quarter: 2013Q4

REPORT INFORMATION
  Report Type: Spontaneous
  Country: CA (occurrence: CA)
  Receive Date: 20130912
  Receipt Date: 20131003
  Transmission Date: 20140711
  Serious: Yes (Other)
  Sender: FDA-Public Use
  Company Number: CA-PURDUE-CAN-2013-0004423

PATIENT
  Age: 72 Year
  Sex: Female

DRUGS (16)
  1. BUTRANS TRANSDERMAL PATCH - 5 MCG/HR [Suspect]
     Indication: PAIN
     Dosage: 5 MCG, Q1H
     Route: 062
     Dates: start: 20130622, end: 201308
  2. OXYBUTYNIN CHLORIDE [Concomitant]
     Indication: BLADDER DISORDER
     Dosage: 2.5 MG, DAILY
     Route: 065
  3. ASAPHEN [Concomitant]
     Indication: ANTIPLATELET THERAPY
     Dosage: 80 MG, DAILY
     Route: 048
  4. ELAVIL                             /00002202/ [Concomitant]
     Indication: FIBROMYALGIA
     Dosage: 10 MG, UNK
     Route: 065
  5. PMS-METOCLOPRAMIDE [Concomitant]
     Indication: GASTROINTESTINAL DISORDER
     Dosage: 30 MG, AC + HS
     Route: 065
  6. CALCIUM 500+D [Concomitant]
     Indication: PRODUCT USED FOR UNKNOWN INDICATION
     Dosage: 500 MG, UNK WITH 400 IU VITAMIN D WITH MEALS
     Route: 065
  7. PREVACID [Concomitant]
     Indication: GASTROINTESTINAL DISORDER
     Dosage: 30 MG, AC AM
     Route: 065
  8. SERC                               /00141802/ [Concomitant]
     Indication: VERTIGO
     Dosage: 16 MG, 2-3 TIMES DAILY PRN
     Route: 065
  9. SYNTHROID [Concomitant]
     Indication: HYPOTHYROIDISM
     Dosage: 0.08 MG, AM
     Route: 065
  10. TYLENOL                            /00020001/ [Concomitant]
     Indication: PAIN
     Dosage: 375 MG, Q4H
     Route: 065
  11. ATORVASTATIN [Concomitant]
     Indication: HYPERCHOLESTEROLAEMIA
     Dosage: 10 MG, DAILY
     Route: 065
  12. PREGABALIN [Concomitant]
     Indication: TRIGEMINAL NEURALGIA
     Dosage: 150 MG, AC LUNCH
     Route: 065
  13. PREGABALIN [Concomitant]
     Dosage: 75 MG, HS
     Route: 065
  14. VAGIFEM [Concomitant]
     Indication: VULVOVAGINAL DRYNESS
     Dosage: 10 MCG, Q3D
     Route: 065
  15. VENTOLIN                           /00139501/ [Concomitant]
     Indication: DYSPNOEA
     Dosage: UNK, PRN
     Route: 055
  16. REPLENS [Concomitant]
     Indication: VULVOVAGINAL DRYNESS
     Dosage: UNK
     Route: 065

REACTIONS (14)
  - Speech disorder [Recovered/Resolved]
  - Rectal fissure [Recovered/Resolved]
  - Feeling abnormal [Recovered/Resolved]
  - Weight decreased [Recovered/Resolved]
  - Constipation [Recovered/Resolved]
  - Vomiting [Recovered/Resolved]
  - Gastrointestinal disorder [Recovered/Resolved]
  - Dyspepsia [Recovered/Resolved]
  - Abdominal pain upper [Recovered/Resolved]
  - Dizziness [Recovered/Resolved]
  - Headache [Recovered/Resolved]
  - Fatigue [Recovered/Resolved]
  - Tremor [Recovered/Resolved]
  - Off label use [Recovered/Resolved]
